FAERS Safety Report 23666305 (Version 1)
Quarter: 2024Q1

REPORT INFORMATION
  Report Type: Spontaneous
  Country: FR (occurrence: FR)
  Receive Date: 20240324
  Receipt Date: 20240324
  Transmission Date: 20240409
  Serious: Yes (Hospitalization, Other)
  Sender: FDA-Public Use
  Company Number: FR-JNJFOC-20240348905

PATIENT
  Age: 73 Year
  Sex: Male

DRUGS (3)
  1. APALUTAMIDE [Suspect]
     Active Substance: APALUTAMIDE
     Indication: Prostate cancer metastatic
     Route: 048
     Dates: start: 202310
  2. FIRMAGON [Concomitant]
     Active Substance: DEGARELIX ACETATE
     Route: 050
     Dates: start: 202310
  3. XGEVA [Concomitant]
     Active Substance: DENOSUMAB
     Route: 050
     Dates: start: 202310

REACTIONS (4)
  - COVID-19 [Unknown]
  - Toxic skin eruption [Unknown]
  - Diabetes mellitus inadequate control [Unknown]
  - Urinary tract infection [Unknown]

NARRATIVE: CASE EVENT DATE: 20240101
